FAERS Safety Report 7222296-3 (Version None)
Quarter: 2011Q1

REPORT INFORMATION
  Report Type: 
  Country: None (occurrence: None)
  Receive Date: 20110112
  Receipt Date: 20110103
  Transmission Date: 20110831
  Serious: Yes (Hospitalization)
  Sender: FDA-Public Use
  Company Number: FR-ASTRAZENECA-2011SE01108

PATIENT
  Age: 13780 Day
  Sex: Male

DRUGS (11)
  1. NEXIUM [Suspect]
     Route: 048
     Dates: start: 20101125, end: 20101207
  2. LOVENOX [Suspect]
     Route: 058
     Dates: start: 20101125, end: 20101207
  3. HYPNOVEL [Concomitant]
     Dates: start: 20101125, end: 20101126
  4. SOLU-MEDROL [Concomitant]
     Dates: start: 20101126
  5. AMIKACIN [Suspect]
     Route: 017
     Dates: start: 20101204, end: 20101205
  6. SEVOFLURANE [Concomitant]
     Dates: start: 20101204, end: 20101206
  7. HALDOL [Suspect]
     Route: 017
     Dates: start: 20101129, end: 20101209
  8. CLAVENTIN [Concomitant]
     Dates: start: 20101203
  9. AUGMENTIN '125' [Concomitant]
     Dates: start: 20101126, end: 20101202
  10. NICOTINE [Concomitant]
     Route: 003
     Dates: start: 20101126
  11. PROFENID [Concomitant]
     Dates: start: 20101125

REACTIONS (1)
  - RENAL FAILURE ACUTE [None]
